FAERS Safety Report 6142844-4 (Version None)
Quarter: 2009Q2

REPORT INFORMATION
  Report Type: 
  Country: None (occurrence: None)
  Receive Date: 20090403
  Receipt Date: 20070420
  Transmission Date: 20091009
  Serious: Yes (Hospitalization, Other)
  Sender: FDA-Public Use
  Company Number: US-ASTRAZENECA-2006UW08049

PATIENT
  Age: 19467 Day
  Sex: Female
  Weight: 128.8 kg

DRUGS (34)
  1. SEROQUEL [Suspect]
     Indication: BIPOLAR DISORDER
     Dosage: 200-400MG
     Route: 048
  2. SEROQUEL [Suspect]
     Indication: DEPRESSION
     Dosage: 200-400MG
     Route: 048
  3. SEROQUEL [Suspect]
     Indication: ANXIETY
     Dosage: 200-400MG
     Route: 048
  4. SEROQUEL [Suspect]
     Dosage: 25MG - 400MG
     Route: 048
     Dates: start: 20030415, end: 20070413
  5. SEROQUEL [Suspect]
     Dosage: 25MG - 400MG
     Route: 048
     Dates: start: 20030415, end: 20070413
  6. SEROQUEL [Suspect]
     Dosage: 25MG - 400MG
     Route: 048
     Dates: start: 20030415, end: 20070413
  7. INSULIN [Concomitant]
  8. ADVAIR HFA [Concomitant]
  9. SPIRIVA [Concomitant]
  10. COMBIVENT [Concomitant]
  11. CALCIUM SUPPLEMENTS [Concomitant]
  12. CLONAZEPAM [Concomitant]
  13. FERROUS GLUCONATE [Concomitant]
  14. SYNTHROID [Concomitant]
  15. LITHIUM CARBONATE [Concomitant]
  16. COZAAR [Concomitant]
  17. SINGULAIR [Concomitant]
  18. TRILEPTAL [Concomitant]
  19. PREVACID [Concomitant]
  20. MIRAPEX [Concomitant]
  21. LOVASTATIN [Concomitant]
  22. EFFEXOR [Concomitant]
  23. DUONEB [Concomitant]
  24. DARVOCET-N 100 [Concomitant]
  25. BUPROPION HCL [Concomitant]
  26. PRILOSEC [Concomitant]
  27. POTASSIUM CHLORIDE CR [Concomitant]
  28. CHLORTHALIDONE [Concomitant]
  29. PREMARIN [Concomitant]
  30. PRAVACHOL [Concomitant]
  31. CYANOCOBALAMIN [Concomitant]
  32. ACTOS [Concomitant]
  33. CYCLOBENZAPRINE [Concomitant]
  34. FLONASO [Concomitant]

REACTIONS (32)
  - ACHLORHYDRIA [None]
  - ASTHMA [None]
  - BACK PAIN [None]
  - CANDIDIASIS [None]
  - CERUMEN IMPACTION [None]
  - CHOLELITHIASIS [None]
  - CHRONIC OBSTRUCTIVE PULMONARY DISEASE [None]
  - CONSTIPATION [None]
  - CYSTITIS [None]
  - DEHYDRATION [None]
  - DIABETES MELLITUS [None]
  - DYSPHAGIA [None]
  - DYSURIA [None]
  - ESSENTIAL TREMOR [None]
  - EXCORIATION [None]
  - EYELID PTOSIS [None]
  - GLAUCOMA [None]
  - HAEMATOCHEZIA [None]
  - HAEMOPTYSIS [None]
  - HEADACHE [None]
  - HERPES ZOSTER [None]
  - HYPOTENSION [None]
  - HYPOVOLAEMIC SHOCK [None]
  - HYPOXIA [None]
  - IMPAIRED GASTRIC EMPTYING [None]
  - JOINT SPRAIN [None]
  - PERNICIOUS ANAEMIA [None]
  - PNEUMONIA [None]
  - TACHYCARDIA [None]
  - TARDIVE DYSKINESIA [None]
  - UPPER AIRWAY RESISTANCE SYNDROME [None]
  - VITAMIN D DEFICIENCY [None]
